FAERS Safety Report 5957341-6 (Version None)
Quarter: 2008Q4

REPORT INFORMATION
  Report Type: 
  Country: None (occurrence: None)
  Receive Date: 20081114
  Receipt Date: 20081031
  Transmission Date: 20090506
  Serious: Yes (Hospitalization)
  Sender: FDA-Public Use
  Company Number: 2008SP022765

PATIENT
  Age: 71 Year
  Sex: Female
  Weight: 68 kg

DRUGS (6)
  1. BETAMETHASONE SODIUM PHOSPHATE [Suspect]
     Indication: DERMATITIS
     Dosage: 2 ML; ; IM
     Route: 030
     Dates: start: 20081007, end: 20081025
  2. BETAMETHASONE SODIUM PHOSPHATE [Suspect]
     Indication: VASCULITIS
     Dosage: 2 ML; ; IM
     Route: 030
     Dates: start: 20081007, end: 20081025
  3. PREXUM [Concomitant]
  4. NORVASC [Concomitant]
  5. ELTROXIN [Concomitant]
  6. MAXALON [Concomitant]

REACTIONS (3)
  - CARDIAC FAILURE [None]
  - KLEBSIELLA INFECTION [None]
  - URINARY TRACT INFECTION BACTERIAL [None]
